FAERS Safety Report 21807406 (Version 1)
Quarter: 2023Q1

REPORT INFORMATION
  Report Type: Report from Study
  Country: US (occurrence: US)
  Receive Date: 20230102
  Receipt Date: 20230102
  Transmission Date: 20230417
  Serious: No
  Sender: FDA-Public Use
  Company Number: US-ABBVIE-4210298

PATIENT
  Age: 77 Year
  Sex: Male

DRUGS (1)
  1. SKYRIZI [Suspect]
     Active Substance: RISANKIZUMAB-RZAA
     Indication: Psoriasis
     Route: 058

REACTIONS (6)
  - Oedema peripheral [Recovering/Resolving]
  - Feeling hot [Unknown]
  - Gait disturbance [Unknown]
  - Psoriasis [Unknown]
  - Joint swelling [Unknown]
  - Skin tightness [Unknown]

NARRATIVE: CASE EVENT DATE: 20221121
